FAERS Safety Report 9230052 (Version 1)
Quarter: 2013Q2

REPORT INFORMATION
  Report Type: Spontaneous
  Country: US (occurrence: None)
  Receive Date: 20130412
  Receipt Date: 20130412
  Transmission Date: 20140414
  Serious: Yes (Life-Threatening)
  Sender: FDA-Public Use
  Company Number: None

PATIENT
  Age: 57 Year
  Sex: Female
  Weight: 99.79 kg

DRUGS (1)
  1. MODAFINIL [Suspect]
     Indication: SOMNOLENCE
     Dosage: 1 TABLET QAM + 1/2 TAB AT NOON  DAILY  PO
     Route: 048
     Dates: start: 20120824, end: 20130313

REACTIONS (2)
  - Tachycardia [None]
  - Blood pressure decreased [None]
